FAERS Safety Report 6411840-1 (Version None)
Quarter: 2009Q4

REPORT INFORMATION
  Report Type: 
  Country: None (occurrence: None)
  Receive Date: 20091023
  Receipt Date: 20091013
  Transmission Date: 20100525
  Serious: Yes (Hospitalization, Other)
  Sender: FDA-Public Use
  Company Number: US-JNJFOC-20090900805

PATIENT
  Sex: Male
  Weight: 65.77 kg

DRUGS (12)
  1. REMICADE [Suspect]
     Route: 042
  2. REMICADE [Suspect]
     Dosage: DECREASED TO 2 INFUSIONS/YEAR
     Route: 042
  3. REMICADE [Suspect]
     Route: 042
  4. REMICADE [Suspect]
     Dosage: STARTED INFLIXIMAB 8-9 YEARS AGO
     Route: 042
  5. REMICADE [Suspect]
     Indication: CROHN'S DISEASE
     Dosage: STARTED INFLIXIMAB 8-9 YEARS AGO
     Route: 042
  6. PENTASA [Concomitant]
     Indication: CROHN'S DISEASE
  7. SINGULAIR [Concomitant]
     Indication: ASTHMA
  8. HYDROCORTISONE [Concomitant]
     Indication: ADRENAL INSUFFICIENCY
  9. FLORINEF [Concomitant]
     Indication: ADRENAL INSUFFICIENCY
  10. ACTONEL [Concomitant]
     Indication: BONE DISORDER
  11. ADVAIR DISKUS 100/50 [Concomitant]
  12. WELLBUTRIN [Concomitant]

REACTIONS (9)
  - CARDIAC FAILURE CONGESTIVE [None]
  - CROHN'S DISEASE [None]
  - HEART RATE IRREGULAR [None]
  - IMPLANTABLE DEFIBRILLATOR INSERTION [None]
  - INTESTINAL OBSTRUCTION [None]
  - MITRAL VALVE DISEASE [None]
  - RASH [None]
  - STREPTOCOCCAL INFECTION [None]
  - VIRAL INFECTION [None]
